FAERS Safety Report 4441189-8 (Version None)
Quarter: 2004Q3

REPORT INFORMATION
  Report Type: 
  Country: None (occurrence: None)
  Receive Date: 20040728
  Receipt Date: 20040407
  Transmission Date: 20050211
  Serious: No
  Sender: FDA-Public Use
  Company Number: US_0404102091

PATIENT
  Age: 1 Day
  Sex: Male
  Weight: 4 kg

DRUGS (2)
  1. STRATTERA [Suspect]
     Dates: start: 20030507, end: 20030530
  2. DEPAKOTE [Concomitant]

REACTIONS (1)
  - BREECH PRESENTATION [None]
